FAERS Safety Report 5815821-8 (Version None)
Quarter: 2008Q3

REPORT INFORMATION
  Report Type: 
  Country: None (occurrence: None)
  Receive Date: 20080721
  Receipt Date: 20080709
  Transmission Date: 20090109
  Serious: Yes (Other)
  Sender: FDA-Public Use
  Company Number: BE-JNJFOC-20080702731

PATIENT
  Age: 70 Year
  Sex: Male

DRUGS (12)
  1. REMICADE [Suspect]
     Indication: RHEUMATOID ARTHRITIS
     Route: 042
  2. METHOTREXATE [Concomitant]
  3. MEDROL [Concomitant]
  4. DICLOFENAC [Concomitant]
  5. FOLIC ACID [Concomitant]
  6. ZALDIAR [Concomitant]
  7. OMEPRAZOLE [Concomitant]
  8. D-CURE [Concomitant]
  9. CALCIUM [Concomitant]
  10. PLAVIX [Concomitant]
  11. CARDIO ASPIRINE [Concomitant]
  12. EMCONCOR [Concomitant]

REACTIONS (1)
  - ENDOCARDITIS [None]
